FAERS Safety Report 12961894 (Version 3)
Quarter: 2016Q4

REPORT INFORMATION
  Report Type: Spontaneous
  Country: US (occurrence: US)
  Receive Date: 20161121
  Receipt Date: 20161228
  Transmission Date: 20170207
  Serious: No
  Sender: FDA-Public Use
  Company Number: US-PFIZER INC-2016070168

PATIENT
  Age: 82 Year
  Sex: Male
  Weight: 104 kg

DRUGS (6)
  1. LYRICA [Suspect]
     Active Substance: PREGABALIN
     Dosage: 100 MG, 3X/DAY (50 MG TAKE TWO CAPSULES THREE TIMES)
     Route: 048
     Dates: start: 2006
  2. LYRICA [Suspect]
     Active Substance: PREGABALIN
     Dosage: 50 MG, 1X/DAY
  3. WARFARIN [Concomitant]
     Active Substance: WARFARIN
     Indication: ANTICOAGULANT THERAPY
     Dosage: 5 MG, UNK (AT NIGHT TIME EVERYDAY EXCEPT ON WEDNESDAY TAKE HALF OF A PILL AT NIGHT)
     Dates: start: 2000
  4. OXYBUTYNIN [Concomitant]
     Active Substance: OXYBUTYNIN
     Indication: URINARY INCONTINENCE
     Dosage: 5 MG, 2X/DAY (TAKES ONE IN THE MORNING AND ONE AT NIGHT)(UP TO THREE TIMES DAILY)
  5. LYRICA [Suspect]
     Active Substance: PREGABALIN
     Indication: NEUROPATHY PERIPHERAL
     Dosage: 100 MG, 3X/DAY (TAKE 2 CAPSULES BY MOUTH 3 TIMES DAILY)
     Route: 048
  6. LYRICA [Suspect]
     Active Substance: PREGABALIN
     Indication: POLYNEUROPATHY
     Dosage: 100 MG, 2X/DAY (II PO BID )
     Route: 048

REACTIONS (5)
  - Gait disturbance [Unknown]
  - Insomnia [Not Recovered/Not Resolved]
  - Intentional product use issue [Not Recovered/Not Resolved]
  - Burning sensation [Unknown]
  - Pain in extremity [Not Recovered/Not Resolved]
